FAERS Safety Report 7378138-9 (Version None)
Quarter: 2011Q1

REPORT INFORMATION
  Report Type: 
  Country: None (occurrence: None)
  Receive Date: 20110328
  Receipt Date: 20110318
  Transmission Date: 20110831
  Serious: Yes (Hospitalization)
  Sender: FDA-Public Use
  Company Number: NL-ASTRAZENECA-2011SE15614

PATIENT
  Age: 40 Year
  Sex: Female
  Weight: 72 kg

DRUGS (4)
  1. ROPIVACAINE [Suspect]
  2. ROPIVACAINE [Suspect]
  3. ROPIVACAINE [Suspect]
     Dosage: 0.2 PERCENT AT RATE OF 10 ML/HR
  4. ROPIVACAINE [Suspect]
     Indication: LOCAL ANAESTHESIA

REACTIONS (3)
  - DIAPHRAGMATIC PARALYSIS [None]
  - BRACHIAL PLEXUS INJURY [None]
  - HORNER'S SYNDROME [None]
